FAERS Safety Report 6057372-4 (Version None)
Quarter: 2009Q1

REPORT INFORMATION
  Report Type: 
  Country: None (occurrence: None)
  Receive Date: 20090126
  Receipt Date: 20090107
  Transmission Date: 20090719
  Serious: Yes (Death)
  Sender: FDA-Public Use
  Company Number: B0553758A

PATIENT
  Age: 51 Year
  Sex: Female

DRUGS (4)
  1. CHLORPROMAZINE [Suspect]
  2. OXYCODONE HCL [Suspect]
  3. PROMETHAZINE [Suspect]
  4. VENLAFAXINE HCL [Suspect]

REACTIONS (1)
  - CARDIO-RESPIRATORY ARREST [None]
